FAERS Safety Report 24328077 (Version 1)
Quarter: 2024Q3

REPORT INFORMATION
  Report Type: Spontaneous
  Country: CA (occurrence: CA)
  Receive Date: 20240917
  Receipt Date: 20240917
  Transmission Date: 20241016
  Serious: Yes (Other)
  Sender: APOTEX
  Company Number: CA-APOTEX-2024AP010432

PATIENT

DRUGS (1)
  1. VARENICLINE [Suspect]
     Active Substance: VARENICLINE
     Indication: Product used for unknown indication
     Dosage: UNK
     Route: 065
     Dates: start: 2024

REACTIONS (1)
  - Hyperthyroidism [Unknown]

NARRATIVE: CASE EVENT DATE: 20240101
